FAERS Safety Report 6476181-5 (Version None)
Quarter: 2009Q4

REPORT INFORMATION
  Report Type: 
  Country: None (occurrence: None)
  Receive Date: 20091204
  Receipt Date: 20091120
  Transmission Date: 20100525
  Serious: Yes (Death, Life-Threatening, Hospitalization, Disabling, Other)
  Sender: FDA-Public Use
  Company Number: DK-BAYER-200936925GPV

PATIENT
  Age: 47 Year
  Sex: Female
  Weight: 53 kg

DRUGS (7)
  1. GADOLINIUM BASED CONTRAST AGENT [Suspect]
     Indication: SCAN WITH CONTRAST
     Route: 042
     Dates: start: 20010601, end: 20010601
  2. FURIX [Concomitant]
  3. CENTYL WITH POTASSIUM CHLORIDE [Concomitant]
     Route: 048
  4. VOLTAREN [Concomitant]
  5. MIXTARD HUMAN INSULIN [Concomitant]
  6. ACTRAPID HUMAN INSULIN [Concomitant]
  7. CALCIUM CARBONATE [Concomitant]

REACTIONS (18)
  - ARTHRALGIA [None]
  - CARDIAC FAILURE [None]
  - HAEMODIALYSIS [None]
  - JOINT CONTRACTURE [None]
  - MUSCLE ATROPHY [None]
  - MUSCLE TIGHTNESS [None]
  - MUSCULOSKELETAL STIFFNESS [None]
  - MYALGIA [None]
  - NEPHROGENIC SYSTEMIC FIBROSIS [None]
  - OEDEMA [None]
  - OEDEMA PERIPHERAL [None]
  - PRURITUS [None]
  - RASH [None]
  - SCLERODERMA [None]
  - SKIN HYPERTROPHY [None]
  - SYSTEMIC SCLEROSIS [None]
  - VOMITING [None]
  - WOUND [None]
